FAERS Safety Report 16353629 (Version 1)
Quarter: 2019Q2

REPORT INFORMATION
  Report Type: Spontaneous
  Country: US (occurrence: US)
  Receive Date: 20190524
  Receipt Date: 20190524
  Transmission Date: 20190711
  Serious: Yes (Hospitalization)
  Sender: FDA-Public Use
  Company Number: US-LANNETT COMPANY, INC.-US-2019LAN000956

PATIENT
  Age: 72 Year
  Sex: Female

DRUGS (1)
  1. ZAROXOLYN [Suspect]
     Active Substance: METOLAZONE
     Indication: OEDEMA DUE TO CARDIAC DISEASE
     Dosage: UNK
     Route: 048
     Dates: start: 20190430, end: 20190501

REACTIONS (10)
  - Dehydration [Recovered/Resolved]
  - Syncope [Recovered/Resolved]
  - Motor dysfunction [Recovered/Resolved]
  - Blood potassium decreased [Recovered/Resolved]
  - Gait inability [Unknown]
  - Dizziness [Not Recovered/Not Resolved]
  - Renal failure [Recovered/Resolved]
  - Orthostatic hypotension [Not Recovered/Not Resolved]
  - Vision blurred [Recovered/Resolved]
  - Blood electrolytes decreased [Recovered/Resolved]

NARRATIVE: CASE EVENT DATE: 20190501
